FAERS Safety Report 16000067 (Version 1)
Quarter: 2019Q1

REPORT INFORMATION
  Report Type: Spontaneous
  Country: FR (occurrence: FR)
  Receive Date: 20190225
  Receipt Date: 20190225
  Transmission Date: 20190418
  Serious: Yes (Other)
  Sender: FDA-Public Use
  Company Number: FR-BAYER-2019-032324

PATIENT
  Age: 64 Year
  Sex: Male

DRUGS (1)
  1. STIVARGA [Suspect]
     Active Substance: REGORAFENIB
     Indication: COLORECTAL CANCER METASTATIC
     Dosage: 80 MG, QD
     Dates: start: 201705

REACTIONS (5)
  - Epilepsy [None]
  - Metastases to liver [None]
  - Off label use [None]
  - Colorectal cancer metastatic [None]
  - Metastases to central nervous system [None]

NARRATIVE: CASE EVENT DATE: 201712
